FAERS Safety Report 13557184 (Version 5)
Quarter: 2018Q3

REPORT INFORMATION
  Report Type: Spontaneous
  Country: ES (occurrence: ES)
  Receive Date: 20170517
  Receipt Date: 20180809
  Transmission Date: 20181010
  Serious: Yes (Other)
  Sender: FDA-Public Use
  Company Number: ES-GILEAD-2017-0272054

PATIENT
  Age: 47 Year
  Sex: Male
  Weight: 70 kg

DRUGS (2)
  1. GENVOYA [Suspect]
     Active Substance: COBICISTAT\ELVITEGRAVIR\EMTRICITABINE\TENOFOVIR ALAFENAMIDE FUMARATE
     Indication: HIV ANTIBODY POSITIVE
  2. GENVOYA [Suspect]
     Active Substance: COBICISTAT\ELVITEGRAVIR\EMTRICITABINE\TENOFOVIR ALAFENAMIDE FUMARATE
     Indication: HIV INFECTION
     Dosage: 1 DF, QD
     Route: 048
     Dates: start: 20160525, end: 20170308

REACTIONS (2)
  - Episcleritis [Recovered/Resolved]
  - Abnormal sensation in eye [Recovered/Resolved]

NARRATIVE: CASE EVENT DATE: 20160526
